FAERS Safety Report 7020364-2 (Version None)
Quarter: 2010Q3

REPORT INFORMATION
  Report Type: 
  Country: None (occurrence: None)
  Receive Date: 20100927
  Receipt Date: 20100915
  Transmission Date: 20110219
  Serious: Yes (Hospitalization)
  Sender: FDA-Public Use
  Company Number: 018055

PATIENT
  Sex: Male

DRUGS (6)
  1. CERTOLIZUMAB PEGOL (CERTOLLIZUMAB PEGOL) [Suspect]
     Indication: RHEUMATOID ARTHRITIS
     Dosage: 200 MG 1X/2 WEEKS SUBCUTANEOUS
     Route: 058
     Dates: start: 20100128
  2. REBAMIPINE [Concomitant]
  3. LOXOPROFEN SODIUM [Concomitant]
  4. ALENDRONATE SODIUM [Concomitant]
  5. PIOGLITAZONE HCL [Concomitant]
  6. AMLODIPINE BESILATE [Concomitant]

REACTIONS (7)
  - BRONCHOPNEUMONIA [None]
  - CANDIDIASIS [None]
  - FUNGAL INFECTION [None]
  - MALAISE [None]
  - PLEURAL EFFUSION [None]
  - PNEUMONIA [None]
  - WHITE BLOOD CELL COUNT INCREASED [None]
